FAERS Safety Report 9555745 (Version 1)
Quarter: 2013Q3

REPORT INFORMATION
  Report Type: Spontaneous
  Country: US (occurrence: None)
  Receive Date: 20130724
  Receipt Date: 20130724
  Transmission Date: 20140515
  Serious: Yes (Other)
  Sender: FDA-Public Use
  Company Number: PHEH2013US006284

PATIENT
  Age: 33 Year
  Sex: Female
  Weight: 47.6 kg

DRUGS (4)
  1. GILENYA (FINGOLIMOD) CAPSULE, 0.5MG [Suspect]
     Indication: MULTIPLE SCLEROSIS
     Route: 048
     Dates: start: 20130315
  2. COPAXONE (GLATIRAMER ACETATE) [Concomitant]
  3. PENICILLIN NOS [Concomitant]
  4. LEXAPRO (ESCITALOPRAM OXALATE) [Concomitant]

REACTIONS (2)
  - Paraesthesia [None]
  - Chest discomfort [None]
